FAERS Safety Report 8587583-5 (Version None)
Quarter: 2012Q3

REPORT INFORMATION
  Report Type: 
  Country: None (occurrence: None)
  Receive Date: 20120810
  Receipt Date: 20120723
  Transmission Date: 20120928
  Serious: Yes (Death, Other)
  Sender: FDA-Public Use
  Company Number: PHHY2008JP27387

PATIENT
  Sex: Female
  Weight: 43 kg

DRUGS (8)
  1. LENDORMIN [Concomitant]
     Dosage: 0.25 MG, UNK
     Route: 048
  2. DIOVAN [Concomitant]
     Dosage: 80 MG, UNK
     Route: 048
     Dates: start: 20080401
  3. SEVELAMER HYDROCHLORIDE [Concomitant]
     Dosage: 3.5 G, UNK
     Route: 048
  4. DRUG THERAPY NOS [Concomitant]
     Dosage: 25 MG, UNK
     Route: 048
     Dates: start: 20080909, end: 20081027
  5. NORVASC [Concomitant]
     Dosage: 10 MG, UNK
     Route: 048
  6. EXJADE [Suspect]
     Indication: MYELODYSPLASTIC SYNDROME
  7. MARZULENE S [Concomitant]
     Dosage: 1 G, UNK
     Route: 048
  8. EXJADE [Suspect]
     Indication: IRON OVERLOAD
     Dosage: 500 MG, DAILY
     Route: 048
     Dates: start: 20080923, end: 20080929

REACTIONS (11)
  - CHOLECYSTITIS [None]
  - SEPSIS [None]
  - NAUSEA [None]
  - DISEASE PROGRESSION [None]
  - RENAL FAILURE CHRONIC [None]
  - HYPERTENSION [None]
  - PARATHYROID DISORDER [None]
  - ILEUS [None]
  - INSOMNIA [None]
  - INFECTION [None]
  - DIARRHOEA [None]
